FAERS Safety Report 13142300 (Version 2)
Quarter: 2017Q1

REPORT INFORMATION
  Report Type: Spontaneous
  Country: US (occurrence: US)
  Receive Date: 20170124
  Receipt Date: 20170223
  Transmission Date: 20170428
  Serious: Yes (Other)
  Sender: FDA-Public Use
  Company Number: US-PFIZER INC-2016248004

PATIENT
  Age: 21 Year
  Sex: Male
  Weight: 71 kg

DRUGS (3)
  1. BENEFIX [Suspect]
     Active Substance: COAGULATION FACTOR IX RECOMBINANT HUMAN\ISOPROPYL ALCOHOL
     Dosage: 7300 IU, DAILY [7300 UNITS (+/- 10%) =100 U/K=3000U/VIAL (NOMINAL) X 2 VIALS = 1000 U/VIAL (NOMINAL]
  2. BENEFIX [Suspect]
     Active Substance: COAGULATION FACTOR IX RECOMBINANT HUMAN\ISOPROPYL ALCOHOL
     Dosage: 7100 IU, DAILY (INFUSE 7100 IU (+/-10%) EQUAL TO 100 U/KG DOSING DAILY)
  3. BENEFIX [Suspect]
     Active Substance: COAGULATION FACTOR IX RECOMBINANT HUMAN\ISOPROPYL ALCOHOL
     Indication: FACTOR IX DEFICIENCY
     Dosage: UNK UNK, DAILY (5800 UNITS (+/- 5%) = 3000 U/VIAL (NOMINAL))

REACTIONS (1)
  - Haemorrhage [Not Recovered/Not Resolved]
